FAERS Safety Report 8018738-6 (Version None)
Quarter: 2012Q1

REPORT INFORMATION
  Report Type: 
  Country: None (occurrence: None)
  Receive Date: 20120103
  Receipt Date: 20120103
  Transmission Date: 20120608
  Serious: Yes (Life-Threatening, Disabling, Other)
  Sender: FDA-Public Use
  Company Number: None

PATIENT
  Age: 8 Year
  Sex: Male
  Weight: 34.019 kg

DRUGS (1)
  1. RISPERIDONE [Suspect]
     Indication: AUTISM
     Dosage: .O1MG 1/2 TABLET
     Route: 048
     Dates: start: 20060925, end: 20100725

REACTIONS (14)
  - HYPERSOMNIA [None]
  - HEART RATE IRREGULAR [None]
  - CONVULSION [None]
  - VOMITING [None]
  - VIITH NERVE PARALYSIS [None]
  - SKIN DISCOLOURATION [None]
  - FEELING ABNORMAL [None]
  - MUSCLE SPASMS [None]
  - DYSPNOEA [None]
  - LETHARGY [None]
  - MALAISE [None]
  - QUALITY OF LIFE DECREASED [None]
  - CONFUSIONAL STATE [None]
  - HEADACHE [None]
